FAERS Safety Report 9066836 (Version 8)
Quarter: 2013Q4

REPORT INFORMATION
  Report Type: Report from Study
  Country: US (occurrence: US)
  Receive Date: 20130214
  Receipt Date: 20131202
  Transmission Date: 20140711
  Serious: Yes (Life-Threatening, Hospitalization, Other)
  Sender: FDA-Public Use
  Company Number: US-VIIV HEALTHCARE LIMITED-B0867191A

PATIENT
  Age: 53 Year
  Sex: Male

DRUGS (6)
  1. MARAVIROC [Suspect]
     Indication: HIV INFECTION
     Dosage: 300MG TWICE PER DAY
     Route: 048
     Dates: start: 20090814
  2. ALBUTEROL [Concomitant]
     Indication: ASTHMA
     Route: 055
  3. CLONIDINE [Concomitant]
     Indication: HYPERTENSION
     Route: 048
  4. MULTIVITAMINS [Concomitant]
     Indication: SUPPLEMENTATION THERAPY
     Route: 048
  5. ZIDOVUDINE [Concomitant]
     Indication: HIV INFECTION
     Dates: start: 20090814
  6. TRUVADA [Concomitant]
     Indication: HIV INFECTION
     Dates: start: 20060517

REACTIONS (1)
  - Small cell lung cancer extensive stage [Not Recovered/Not Resolved]
